FAERS Safety Report 4967931-5 (Version None)
Quarter: 2006Q1

REPORT INFORMATION
  Report Type: 
  Country: None (occurrence: None)
  Receive Date: 20060201
  Receipt Date: 20051216
  Transmission Date: 20060701
  Serious: No
  Sender: FDA-Public Use
  Company Number: 2005PV006057

PATIENT
  Age: 57 Year
  Sex: Female
  Weight: 77.1115 kg

DRUGS (3)
  1. BYETTA [Suspect]
     Indication: DIABETES MELLITUS NON-INSULIN-DEPENDENT
     Dosage: SEE IMAGE
     Route: 058
     Dates: start: 20051001, end: 20051124
  2. BYETTA [Suspect]
     Indication: DIABETES MELLITUS NON-INSULIN-DEPENDENT
     Dosage: SEE IMAGE
     Route: 058
     Dates: start: 20051125
  3. AVANDIA [Concomitant]

REACTIONS (5)
  - DECREASED APPETITE [None]
  - DYSPEPSIA [None]
  - HYPERCHLORHYDRIA [None]
  - OEDEMA PERIPHERAL [None]
  - WEIGHT DECREASED [None]
